FAERS Safety Report 19019151 (Version 1)
Quarter: 2021Q1

REPORT INFORMATION
  Report Type: Spontaneous
  Country: ES (occurrence: ES)
  Receive Date: 20210317
  Receipt Date: 20210317
  Transmission Date: 20210420
  Serious: Yes (Hospitalization)
  Sender: FDA-Public Use
  Company Number: ES-SA-2021SA081840

PATIENT
  Sex: Male

DRUGS (2)
  1. ENOXAPARIN SODIUM. [Suspect]
     Active Substance: ENOXAPARIN SODIUM
     Indication: PORTAL VEIN THROMBOSIS
  2. ENOXAPARIN SODIUM. [Suspect]
     Active Substance: ENOXAPARIN SODIUM
     Indication: UMBILICAL CORD VASCULAR DISORDER
     Dosage: A 10?FOLD DOSE OF ENOXAPARIN IS GIVEN BY MISTAKE
     Dates: start: 20210209, end: 20210209

REACTIONS (2)
  - Abnormal clotting factor [Unknown]
  - Product preparation error [Unknown]

NARRATIVE: CASE EVENT DATE: 20210210
